FAERS Safety Report 12905960 (Version 9)
Quarter: 2018Q3

REPORT INFORMATION
  Report Type: Spontaneous
  Country: JP (occurrence: JP)
  Receive Date: 20161103
  Receipt Date: 20180914
  Transmission Date: 20181010
  Serious: Yes (Hospitalization, Other)
  Sender: FDA-Public Use
  Company Number: JP-CONCORDIA PHARMACEUTICALS INC.-GSH201611-005480

PATIENT
  Age: 40 Year
  Sex: Male
  Weight: 78 kg

DRUGS (12)
  1. PLAQUENIL [Suspect]
     Active Substance: HYDROXYCHLOROQUINE SULFATE
     Dosage: DAY 3  (DISSOLVED A HYDROXYCHLOROQUINE SULFATE 200MG TABLET IN WATER 100 ML AND ADMINISTERED 4 ML)
     Route: 048
     Dates: start: 20160921, end: 20160921
  2. PLAQUENIL [Suspect]
     Active Substance: HYDROXYCHLOROQUINE SULFATE
     Dosage: DAY 14(DISSOLVED A HYDROXYCHLOROQUINE SULFATE 200MG TABLET IN WATER 100 ML AND ADMINISTERED 80 ML)
     Route: 048
     Dates: start: 20161002, end: 20161002
  3. TACROLIMUS MONOHYDRATE [Concomitant]
     Active Substance: TACROLIMUS
     Indication: CUTANEOUS LUPUS ERYTHEMATOSUS
  4. PLAQUENIL [Suspect]
     Active Substance: HYDROXYCHLOROQUINE SULFATE
     Dosage: ON DAY 1 (DISSOLVED A HYDROXYCHLOROQUINE SULFATE 200MG TABLET IN WATER 100 ML AND ADMINISTERED 1 ML)
     Route: 048
     Dates: start: 20160919, end: 20160919
  5. PLAQUENIL [Suspect]
     Active Substance: HYDROXYCHLOROQUINE SULFATE
     Dosage: DAY 13(DISSOLVED A HYDROXYCHLOROQUINE SULFATE 200MG TABLET IN WATER 100 ML AND ADMINISTERED 40 ML)
     Route: 048
     Dates: start: 20161001, end: 20161001
  6. PLAQUENIL [Suspect]
     Active Substance: HYDROXYCHLOROQUINE SULFATE
     Dosage: DAY 4
     Route: 048
     Dates: start: 20160922, end: 20160922
  7. PLAQUENIL [Suspect]
     Active Substance: HYDROXYCHLOROQUINE SULFATE
     Dosage: ON DAY 22
     Route: 048
     Dates: start: 20161010
  8. PLAQUENIL [Suspect]
     Active Substance: HYDROXYCHLOROQUINE SULFATE
     Dosage: DAY 2 (DISSOLVED A HYDROXYCHLOROQUINE SULPHATE 200MG TABLET IN WATER 100 ML AND ADMINISTERED 2 ML)
     Route: 048
     Dates: start: 20160920, end: 20160920
  9. PLAQUENIL [Suspect]
     Active Substance: HYDROXYCHLOROQUINE SULFATE
     Dosage: (DISSOLVED A HYDROXYCHLOROQUINE SULFATE 200MG TABLET IN WATER 100 ML AND ADMINISTERED 10 ML)
     Route: 048
     Dates: start: 20160923, end: 20160929
  10. PLAQUENIL [Suspect]
     Active Substance: HYDROXYCHLOROQUINE SULFATE
     Route: 048
     Dates: start: 20161003, end: 20161009
  11. PLAQUENIL [Suspect]
     Active Substance: HYDROXYCHLOROQUINE SULFATE
     Indication: CUTANEOUS LUPUS ERYTHEMATOSUS
     Route: 048
     Dates: start: 20160815, end: 20160902
  12. PLAQUENIL [Suspect]
     Active Substance: HYDROXYCHLOROQUINE SULFATE
     Dosage: DAY 12(DISSOLVED A HYDROXYCHLOROQUINE SULFATE 200MG TABLET IN WATER 100 ML AND ADMINISTERED 20 ML)
     Route: 048
     Dates: start: 20160930, end: 20160930

REACTIONS (6)
  - Skin exfoliation [Recovered/Resolved]
  - Erythema multiforme [Recovering/Resolving]
  - Pruritus [Recovered/Resolved]
  - Drug eruption [Recovered/Resolved]
  - Perivascular dermatitis [Unknown]
  - Erythema [Recovered/Resolved]

NARRATIVE: CASE EVENT DATE: 201608
